FAERS Safety Report 22591264 (Version 1)
Quarter: 2023Q2

REPORT INFORMATION
  Report Type: Spontaneous
  Country: US (occurrence: US)
  Receive Date: 20230612
  Receipt Date: 20230612
  Transmission Date: 20230722
  Serious: No
  Sender: FDA-Public Use
  Company Number: US-RIGEL PHARMACEUTICALS, INC.-2022FOS000418

PATIENT
  Sex: Female
  Weight: 77.098 kg

DRUGS (2)
  1. TAVALISSE [Suspect]
     Active Substance: FOSTAMATINIB
     Indication: Immune thrombocytopenia
     Dosage: 100 MG IN THE MORNING AND 150 MG IN THE EVENING
     Route: 048
     Dates: start: 20211117
  2. TAVALISSE [Suspect]
     Active Substance: FOSTAMATINIB
     Indication: Iron deficiency anaemia

REACTIONS (4)
  - Palpitations [Unknown]
  - Product dose omission issue [Unknown]
  - Product prescribing issue [Unknown]
  - Blood pressure increased [Unknown]
